FAERS Safety Report 16449024 (Version 1)
Quarter: 2019Q2

REPORT INFORMATION
  Report Type: Report from Study
  Country: US (occurrence: US)
  Receive Date: 20190619
  Receipt Date: 20190619
  Transmission Date: 20190711
  Serious: Yes (Other)
  Sender: FDA-Public Use
  Company Number: US-SA-2018SA150214

PATIENT
  Age: 59 Year
  Sex: Male

DRUGS (2)
  1. AGALSIDASE BETA [Suspect]
     Active Substance: AGALSIDASE BETA
     Indication: FABRY^S DISEASE
     Dosage: 110(UNITS NOT PROVIDED) FREQUENCY: Q2
     Route: 041
     Dates: start: 20171116
  2. AGALSIDASE BETA [Suspect]
     Active Substance: AGALSIDASE BETA
     Dosage: 110 MG, QOW
     Route: 041
     Dates: start: 20180807

REACTIONS (9)
  - Somnolence [Unknown]
  - Cardiac hypertrophy [Unknown]
  - Cardiac flutter [Not Recovered/Not Resolved]
  - Chest pain [Recovering/Resolving]
  - Cyst [Unknown]
  - Hypoaesthesia [Recovered/Resolved]
  - Condition aggravated [Unknown]
  - Pain [Unknown]
  - Bladder dysfunction [Unknown]

NARRATIVE: CASE EVENT DATE: 2019
